FAERS Safety Report 11180684 (Version 1)
Quarter: 2015Q2

REPORT INFORMATION
  Report Type: Spontaneous
  Country: GB (occurrence: None)
  Receive Date: 20150609
  Receipt Date: 20150609
  Transmission Date: 20150821
  Serious: Yes (Hospitalization)
  Sender: FDA-Public Use
  Company Number: GB-H14001-15-00857

PATIENT
  Age: 80 Year

DRUGS (5)
  1. PARACETAMOL [Concomitant]
     Active Substance: ACETAMINOPHEN
  2. AMLODIPINE [Concomitant]
     Active Substance: AMLODIPINE BESYLATE
  3. SIMVASTATIN. [Concomitant]
     Active Substance: SIMVASTATIN
  4. WARFARIN [Concomitant]
     Active Substance: WARFARIN
  5. CO-AMOXICLAV (AUGMENTIN /00756801/) (UNKNOWN) (AMOXICILLIN SODIUM, CLAVULANATE POTASSIUM) [Suspect]
     Active Substance: AMOXICILLIN\CLAVULANATE POTASSIUM
     Indication: PRODUCT USED FOR UNKNOWN INDICATION
     Dosage: 1875 MG (625 MG,3 IN 1 D)
     Route: 048

REACTIONS (3)
  - Acute kidney injury [None]
  - Sepsis [None]
  - Diarrhoea [None]
